FAERS Safety Report 5919231-4 (Version None)
Quarter: 2008Q4

REPORT INFORMATION
  Report Type: 
  Country: None (occurrence: None)
  Receive Date: 20081014
  Receipt Date: 20081014
  Transmission Date: 20090506
  Serious: Yes (Other)
  Sender: FDA-Public Use
  Company Number: None

PATIENT
  Sex: Female
  Weight: 105.6881 kg

DRUGS (1)
  1. CYMBALTA [Suspect]
     Indication: DEPRESSION
     Dosage: PILL ONCE PO
     Route: 048
     Dates: start: 20080911, end: 20081005

REACTIONS (13)
  - AGITATION [None]
  - CRYING [None]
  - DEPRESSED MOOD [None]
  - DISTURBANCE IN ATTENTION [None]
  - FLIGHT OF IDEAS [None]
  - INSOMNIA [None]
  - MENTAL DISORDER [None]
  - NIGHT SWEATS [None]
  - NIGHTMARE [None]
  - RESTLESSNESS [None]
  - SLEEP DISORDER [None]
  - SOCIAL PROBLEM [None]
  - SUICIDAL IDEATION [None]
